FAERS Safety Report 21046023 (Version 3)
Quarter: 2022Q3

REPORT INFORMATION
  Report Type: Spontaneous
  Country: JP (occurrence: JP)
  Receive Date: 20220706
  Receipt Date: 20220906
  Transmission Date: 20221026
  Serious: Yes (Hospitalization, Other)
  Sender: FDA-Public Use
  Company Number: JP-ONO-2022JP018255

PATIENT
  Age: 77 Year
  Sex: Female

DRUGS (2)
  1. YERVOY [Suspect]
     Active Substance: IPILIMUMAB
     Indication: Malignant melanoma
     Dosage: UNK
     Route: 041
  2. OPDIVO [Suspect]
     Active Substance: NIVOLUMAB
     Indication: Malignant melanoma
     Dosage: UNK
     Route: 042

REACTIONS (9)
  - Electrocardiogram ST segment depression [Unknown]
  - Liver disorder [Unknown]
  - Immune-mediated myositis [Recovering/Resolving]
  - Atrial flutter [Unknown]
  - Troponin T increased [Unknown]
  - Electrocardiogram T wave abnormal [Unknown]
  - Erythema [Unknown]
  - Rash pruritic [Unknown]
  - Blood creatine phosphokinase MB increased [Unknown]
